FAERS Safety Report 7092114-5 (Version None)
Quarter: 2010Q4

REPORT INFORMATION
  Report Type: 
  Country: None (occurrence: None)
  Receive Date: 20101109
  Receipt Date: 20101109
  Transmission Date: 20110411
  Serious: Yes (Other)
  Sender: FDA-Public Use
  Company Number: AU-JNJFOC-20101002336

PATIENT

DRUGS (1)
  1. DURAGESIC-100 [Suspect]
     Indication: ILL-DEFINED DISORDER
     Route: 062

REACTIONS (2)
  - PRODUCT PACKAGING QUANTITY ISSUE [None]
  - PRODUCT TAMPERING [None]
